FAERS Safety Report 7191773-6 (Version None)
Quarter: 2010Q4

REPORT INFORMATION
  Report Type: 
  Country: None (occurrence: None)
  Receive Date: 20101223
  Receipt Date: 20101112
  Transmission Date: 20110411
  Serious: Yes (Life-Threatening, Other)
  Sender: FDA-Public Use
  Company Number: GB-BAYER-201046874GPV

PATIENT
  Sex: Male

DRUGS (2)
  1. ULTRAVIST 300 [Suspect]
     Dosage: 100 ML, UNK
     Dates: start: 20101109, end: 20101109
  2. HYDROCORTISONE [Concomitant]
     Route: 042

REACTIONS (1)
  - ANAPHYLACTIC REACTION [None]
